FAERS Safety Report 9902958 (Version 1)
Quarter: 2014Q1

REPORT INFORMATION
  Report Type: Spontaneous
  Country: US (occurrence: US)
  Receive Date: 20140217
  Receipt Date: 20140217
  Transmission Date: 20141002
  Serious: Yes (Death, Other)
  Sender: FDA-Public Use
  Company Number: PHHY2014US016078

PATIENT
  Age: 58 Year
  Sex: Male

DRUGS (3)
  1. VINBLASTINE [Suspect]
     Indication: CHEMOTHERAPY
     Dosage: 0.2 MG/KG, PER DAY
  2. BLEOMYCIN [Suspect]
     Indication: CHEMOTHERAPY
     Dosage: 30 U, DAILY
     Route: 042
  3. ALLOPURINOL [Suspect]

REACTIONS (25)
  - Respiratory failure [Fatal]
  - Cardiac failure [Fatal]
  - Renal failure [Fatal]
  - Renal impairment [Fatal]
  - Oliguria [Fatal]
  - Creatinine renal clearance decreased [Fatal]
  - Tumour lysis syndrome [Unknown]
  - Hyperphosphataemia [Recovering/Resolving]
  - Hyperkalaemia [Recovering/Resolving]
  - Hyperuricaemia [Recovering/Resolving]
  - Hypocalcaemia [Recovering/Resolving]
  - Blood lactate dehydrogenase increased [Recovering/Resolving]
  - Drug hypersensitivity [Unknown]
  - Skin reaction [Unknown]
  - Pneumonia [Unknown]
  - Granulocytopenia [Unknown]
  - Thrombocytopenia [Unknown]
  - Respiratory moniliasis [Unknown]
  - Hepatic candidiasis [Unknown]
  - Splenic candidiasis [Unknown]
  - Gastrointestinal candidiasis [Unknown]
  - Bone marrow necrosis [Unknown]
  - Bone marrow failure [Unknown]
  - Retroperitoneal cancer [Unknown]
  - Metastases to skin [Unknown]
